FAERS Safety Report 4699826-9 (Version None)
Quarter: 2005Q2

REPORT INFORMATION
  Report Type: 
  Country: None (occurrence: None)
  Receive Date: 20050623
  Receipt Date: 20050615
  Transmission Date: 20051028
  Serious: No
  Sender: FDA-Public Use
  Company Number: US-2005-010696

PATIENT
  Age: 54 Year
  Sex: Female

DRUGS (1)
  1. CLIMARA [Suspect]
     Indication: MENOPAUSE
     Dosage: 0.06 MG/D, CONT, TRANSDERMAL
     Route: 062
     Dates: start: 20000101

REACTIONS (4)
  - BENIGN NEOPLASM OF THYROID GLAND [None]
  - BLOOD THYROID STIMULATING HORMONE ABNORMAL [None]
  - THYROXINE ABNORMAL [None]
  - TRI-IODOTHYRONINE ABNORMAL [None]
